FAERS Safety Report 7712044-2 (Version None)
Quarter: 2011Q3

REPORT INFORMATION
  Report Type: 
  Country: None (occurrence: None)
  Receive Date: 20110826
  Receipt Date: 20110822
  Transmission Date: 20111222
  Serious: Yes (Life-Threatening, Hospitalization)
  Sender: FDA-Public Use
  Company Number: GB-PFIZER INC-2011194643

PATIENT
  Sex: Male
  Weight: 61.5 kg

DRUGS (24)
  1. BISOPROLOL FUMARATE [Concomitant]
     Dosage: 1.25 MG, 1X/DAY
  2. DIHYDROCODEINE [Concomitant]
     Dosage: 30 MG, 4X/DAY
  3. OMEPRAZOLE [Concomitant]
     Dosage: 20 MG, 1X/DAY
  4. SUNITINIB MALATE [Suspect]
     Indication: RENAL CANCER
     Dosage: 50 MG, UNK
     Route: 048
     Dates: start: 20100101, end: 20110801
  5. ALLOPURINOL [Concomitant]
     Dosage: 100 MG, 3X/DAY
  6. BUMETANIDE [Concomitant]
     Dosage: 1 MG, 1X/DAY
  7. CO-DYDRAMOL [Concomitant]
     Dosage: 4X/DAY
  8. DOCUSATE SODIUM [Concomitant]
     Dosage: 100 MG, 3X/DAY
  9. ZOPICLONE [Concomitant]
     Dosage: 3.75 MG, AS NEEDED
  10. ONDANSETRON HYDROCHLORIDE [Concomitant]
     Dosage: 4 MG, 2X/DAY
  11. PROCHLORPERAZINE MALEATE [Concomitant]
     Dosage: 5 MG, 3X/DAY
  12. ALENDRONIC ACID [Concomitant]
     Dosage: 70 MG, WEEKLY
  13. ACETYLSALICYLIC ACID [Concomitant]
     Dosage: 75 MG, 1X/DAY
  14. DICLOFENAC SODIUM [Concomitant]
     Dosage: 75 MG, 1X/DAY
  15. PERINDOPRIL ERBUMINE [Concomitant]
     Dosage: 2 MG, 1X/DAY
  16. SPIRONOLACTONE [Concomitant]
     Dosage: 25 MG, 1X/DAY
  17. OXYCODONE HYDROCHLORIDE [Concomitant]
     Dosage: 20 MG, 4X/DAY
  18. ROSUVASTATIN [Concomitant]
     Dosage: 10 MG, ALTERNATE DAY
  19. CLOPIDOGREL [Concomitant]
     Dosage: 75 MG, 1X/DAY
  20. FERROUS SULFATE TAB [Concomitant]
     Dosage: 200 MG, 1X/DAY
  21. METOCLOPRAMIDE HYDROCHLORIDE [Concomitant]
     Dosage: 10 MG, 3X/DAY
  22. BETNOVATE-N [Concomitant]
  23. LEVOTHYROXINE SODIUM [Concomitant]
     Dosage: 50 UG, 2X/DAY
  24. PARACETAMOL [Concomitant]
     Dosage: 500 MG, AS NEEDED

REACTIONS (3)
  - SKIN ULCER [None]
  - GASTROINTESTINAL HAEMORRHAGE [None]
  - IMPAIRED HEALING [None]
